FAERS Safety Report 4279303-X (Version None)
Quarter: 2004Q1

REPORT INFORMATION
  Report Type: 
  Country: None (occurrence: None)
  Receive Date: 20040127
  Receipt Date: 20020823
  Transmission Date: 20041129
  Serious: Yes (Hospitalization)
  Sender: FDA-Public Use
  Company Number: BE-ROCHE-320297

PATIENT
  Age: 64 Year
  Sex: Male
  Weight: 81 kg

DRUGS (5)
  1. MYCOPHENOLATE MOFETIL [Suspect]
     Route: 048
     Dates: start: 20020504
  2. DACLIZUMAB [Suspect]
     Route: 042
     Dates: start: 20020506, end: 20020506
  3. DACLIZUMAB [Suspect]
     Dosage: FOR A TOTAL OF 4 DOSES.
     Route: 042
     Dates: start: 20020521, end: 20020705
  4. NEORAL [Concomitant]
     Dates: start: 20020218
  5. DELTACORTRIL [Concomitant]
     Dates: start: 20021015

REACTIONS (5)
  - BENIGN PROSTATIC HYPERPLASIA [None]
  - ESCHERICHIA INFECTION [None]
  - KIDNEY INFECTION [None]
  - KLEBSIELLA INFECTION [None]
  - URINARY TRACT INFECTION [None]
